FAERS Safety Report 10042251 (Version 1)
Quarter: 2014Q1

REPORT INFORMATION
  Report Type: Spontaneous
  Country: NL (occurrence: NL)
  Receive Date: 20140327
  Receipt Date: 20140327
  Transmission Date: 20141002
  Serious: Yes (Congenital Anomaly)
  Sender: FDA-Public Use
  Company Number: NL-GLAXOSMITHKLINE-B0980214A

PATIENT
  Sex: 0

DRUGS (2)
  1. LAMICTAL [Suspect]
     Indication: JUVENILE MYOCLONIC EPILEPSY
     Dosage: 125MG TWICE PER DAY
     Route: 064
     Dates: start: 2010
  2. FOLIC ACID [Concomitant]

REACTIONS (3)
  - Atrioventricular septal defect [Not Recovered/Not Resolved]
  - Foetal exposure during pregnancy [Unknown]
  - Abortion induced [Unknown]
